FAERS Safety Report 7888091-7 (Version None)
Quarter: 2011Q4

REPORT INFORMATION
  Report Type: 
  Country: None (occurrence: None)
  Receive Date: 20111103
  Receipt Date: 20111031
  Transmission Date: 20120403
  Serious: Yes (Hospitalization, Other)
  Sender: FDA-Public Use
  Company Number: SE-BRISTOL-MYERS SQUIBB COMPANY-16191132

PATIENT
  Age: 84 Year
  Sex: Female

DRUGS (4)
  1. HYDREA [Suspect]
     Indication: ESSENTIAL THROMBOCYTHAEMIA
     Dosage: 5-7 YEARS STARTED
  2. SALURES [Concomitant]
     Indication: HYPERTENSION
  3. PLAVIX [Concomitant]
     Indication: ESSENTIAL THROMBOCYTHAEMIA
  4. PREDNISOLONE [Concomitant]
     Indication: MYALGIA
     Dosage: IN PERIODS

REACTIONS (2)
  - DEMENTIA [None]
  - HYDROCEPHALUS [None]
